FAERS Safety Report 5335789-0 (Version None)
Quarter: 2007Q1

REPORT INFORMATION
  Report Type: 
  Country: None (occurrence: None)
  Receive Date: 20070322
  Receipt Date: 20070102
  Transmission Date: 20070707
  Serious: Yes (Death)
  Sender: FDA-Public Use
  Company Number: US-CVT-062450

PATIENT
  Age: 84 Year
  Sex: Male
  Weight: 71.2 kg

DRUGS (8)
  1. RANEXA [Suspect]
     Indication: ANGINA PECTORIS
     Dosage: 500 MG, BID, ORAL
     Route: 048
     Dates: start: 20061107, end: 20061108
  2. NITROGLYCERIN [Concomitant]
  3. ASPIRIN [Concomitant]
  4. LOPRESSOR [Concomitant]
  5. ISOSORBIDE DINITRATE [Concomitant]
  6. DIGOXIN/00017701/ (DIGOXIN) [Concomitant]
  7. ALDACTONE [Concomitant]
  8. CRESTOR/01588601/ (ROSUVASTATIN) [Concomitant]

REACTIONS (1)
  - SUDDEN DEATH [None]
